FAERS Safety Report 16564598 (Version 1)
Quarter: 2019Q3

REPORT INFORMATION
  Report Type: Spontaneous
  Country: SK (occurrence: SK)
  Receive Date: 20190712
  Receipt Date: 20190712
  Transmission Date: 20191004
  Serious: Yes (Other)
  Sender: FDA-Public Use
  Company Number: SK-JNJFOC-20190535958

PATIENT
  Age: 71 Year
  Sex: Male

DRUGS (1)
  1. IBRUTINIB [Suspect]
     Active Substance: IBRUTINIB
     Indication: MANTLE CELL LYMPHOMA
     Route: 048
     Dates: start: 20160511

REACTIONS (6)
  - Road traffic accident [Unknown]
  - Diarrhoea [Recovered/Resolved]
  - Erysipelas [Unknown]
  - Herpes simplex [Unknown]
  - Haematoma [Unknown]
  - Wound [Unknown]

NARRATIVE: CASE EVENT DATE: 20170121
